FAERS Safety Report 5492812-0 (Version None)
Quarter: 2007Q4

REPORT INFORMATION
  Report Type: 
  Country: None (occurrence: None)
  Receive Date: 20071023
  Receipt Date: 20071016
  Transmission Date: 20080405
  Serious: Yes (Other)
  Sender: FDA-Public Use
  Company Number: CN-JNJFOC-20071004012

PATIENT

DRUGS (2)
  1. ANTUSS INFANTS DECONGESTANT + COUGH [Suspect]
     Indication: COUGH
  2. ANTUSS INFANTS DECONGESTANT + COUGH [Suspect]
     Indication: NASAL CONGESTION
     Dosage: UNKNOWN

REACTIONS (1)
  - VOMITING [None]
